FAERS Safety Report 16248341 (Version 2)
Quarter: 2019Q2

REPORT INFORMATION
  Report Type: Spontaneous
  Country: US (occurrence: US)
  Receive Date: 20190429
  Receipt Date: 20190524
  Transmission Date: 20190711
  Serious: Yes (Other)
  Sender: FDA-Public Use
  Company Number: US-AUROBINDO-AUR-APL-2019-022473

PATIENT

DRUGS (1)
  1. GABAPENTIN TABLETS USP 600MG [Suspect]
     Active Substance: GABAPENTIN
     Indication: DEPRESSION
     Dosage: 600 MILLIGRAM, FOUR TIMES/DAY
     Route: 048

REACTIONS (7)
  - Depressed level of consciousness [Unknown]
  - Off label use [Unknown]
  - Asthenia [Unknown]
  - Hepatic enzyme increased [Unknown]
  - Anaemia [Unknown]
  - Drug level increased [Unknown]
  - Fatigue [Unknown]

NARRATIVE: CASE EVENT DATE: 201811
